FAERS Safety Report 6311503-7 (Version None)
Quarter: 2009Q3

REPORT INFORMATION
  Report Type: 
  Country: None (occurrence: None)
  Receive Date: 20090817
  Receipt Date: 20090804
  Transmission Date: 20100115
  Serious: Yes (Hospitalization)
  Sender: FDA-Public Use
  Company Number: PHHY2009FR24255

PATIENT
  Sex: Male
  Weight: 69 kg

DRUGS (6)
  1. VOLTAREN [Suspect]
     Indication: SPINAL CORD DISORDER
     Dosage: 75 MG/DAY
     Dates: start: 20090330
  2. VOLTAREN [Suspect]
     Indication: SCIATICA
  3. MOPRAL [Concomitant]
     Dosage: 20 MG, UNK
  4. ORACILLINE [Concomitant]
     Indication: PROPHYLAXIS
     Dosage: 1M UI BID
     Dates: start: 19900101
  5. ORACILLINE [Concomitant]
     Indication: IMMUNISATION
  6. ULTRA-LEVURE [Concomitant]
     Dosage: 1 DF, BID
     Dates: start: 19900101

REACTIONS (4)
  - DIVERTICULUM INTESTINAL [None]
  - HAEMOGLOBIN DECREASED [None]
  - LARGE INTESTINAL HAEMORRHAGE [None]
  - RECTAL HAEMORRHAGE [None]
